FAERS Safety Report 8196324-5 (Version None)
Quarter: 2012Q1

REPORT INFORMATION
  Report Type: 
  Country: None (occurrence: None)
  Receive Date: 20120309
  Receipt Date: 20120306
  Transmission Date: 20120608
  Serious: No
  Sender: FDA-Public Use
  Company Number: US-PFIZER INC-2012061256

PATIENT
  Sex: Female
  Weight: 58.957 kg

DRUGS (2)
  1. EFFEXOR XR [Suspect]
     Indication: DEPRESSION
     Dosage: 150 MG, DAILY
  2. EFFEXOR XR [Suspect]
     Indication: ANXIETY

REACTIONS (3)
  - NAUSEA [None]
  - MALAISE [None]
  - DIZZINESS [None]
